FAERS Safety Report 6599576-8 (Version None)
Quarter: 2010Q1

REPORT INFORMATION
  Report Type: 
  Country: None (occurrence: None)
  Receive Date: 20100224
  Receipt Date: 20100211
  Transmission Date: 20100710
  Serious: Yes (Other)
  Sender: FDA-Public Use
  Company Number: TR-ELI_LILLY_AND_COMPANY-TR201002005101

PATIENT
  Sex: Female

DRUGS (1)
  1. PROZAC [Suspect]
     Indication: ANXIETY
     Dosage: 20 MG, UNKNOWN
     Route: 048
     Dates: start: 20091203

REACTIONS (4)
  - CARBOHYDRATE ANTIGEN 19-9 INCREASED [None]
  - MOOD ALTERED [None]
  - OFF LABEL USE [None]
  - OVARIAN CYST [None]
